FAERS Safety Report 6521165-1 (Version None)
Quarter: 2009Q4

REPORT INFORMATION
  Report Type: 
  Country: None (occurrence: None)
  Receive Date: 20091222
  Receipt Date: 20091215
  Transmission Date: 20100525
  Serious: Yes (Death, Hospitalization, Other)
  Sender: FDA-Public Use
  Company Number: 2009US004154

PATIENT
  Age: 62 Year
  Sex: Male
  Weight: 88 kg

DRUGS (10)
  1. PROGRAF [Suspect]
     Indication: LIVER TRANSPLANT
     Dosage: 4 MG, BID,
     Dates: start: 20090721, end: 20091119
  2. CELLCEPT [Concomitant]
  3. PREDNISONE [Concomitant]
  4. URSODIOL [Concomitant]
  5. METOPROLOL (METOPROLOL) [Concomitant]
  6. CITALOPRAM HYDROBROMIDE [Concomitant]
  7. PREVACID [Concomitant]
  8. COUMADIN [Concomitant]
  9. LORTAB [Concomitant]
  10. LASIX [Concomitant]

REACTIONS (30)
  - ACUTE RESPIRATORY FAILURE [None]
  - ANAEMIA [None]
  - ATELECTASIS [None]
  - ATRIAL FLUTTER [None]
  - BACK PAIN [None]
  - BLOOD PRESSURE DECREASED [None]
  - CARDIAC ARREST [None]
  - COAGULOPATHY [None]
  - COMPRESSION FRACTURE [None]
  - CONFUSIONAL STATE [None]
  - CONTINUOUS HAEMODIAFILTRATION [None]
  - DEPRESSION [None]
  - DEVICE RELATED SEPSIS [None]
  - FALL [None]
  - HEAD INJURY [None]
  - HEART RATE DECREASED [None]
  - HYPERTENSION [None]
  - INTESTINAL PERFORATION [None]
  - LIVER TRANSPLANT REJECTION [None]
  - PERITONITIS [None]
  - PLEURAL EFFUSION [None]
  - PNEUMONIA STAPHYLOCOCCAL [None]
  - POST PROCEDURAL BILE LEAK [None]
  - POST PROCEDURAL HAEMORRHAGE [None]
  - PUPILS UNEQUAL [None]
  - RENAL FAILURE ACUTE [None]
  - SEPTIC SHOCK [None]
  - SPINAL COMPRESSION FRACTURE [None]
  - SUBDURAL HAEMATOMA [None]
  - TRANSPLANT REJECTION [None]
